FAERS Safety Report 6073640-4 (Version None)
Quarter: 2009Q1

REPORT INFORMATION
  Report Type: 
  Country: None (occurrence: None)
  Receive Date: 20090211
  Receipt Date: 20090130
  Transmission Date: 20090719
  Serious: Yes (Life-Threatening, Hospitalization)
  Sender: FDA-Public Use
  Company Number: NO-PFIZER INC-2009163278

PATIENT

DRUGS (2)
  1. PREDNISOLONE AND PREDNISOLONE STEAGLATE [Suspect]
     Indication: LICHEN PLANUS
     Dosage: 40 MG, UNK
     Route: 048
     Dates: start: 20080922
  2. LEVOTHYROXINE SODIUM [Concomitant]

REACTIONS (1)
  - CEREBRAL THROMBOSIS [None]
